FAERS Safety Report 16162602 (Version 4)
Quarter: 2019Q2

REPORT INFORMATION
  Report Type: Report from Study
  Country: US (occurrence: US)
  Receive Date: 20190405
  Receipt Date: 20190418
  Transmission Date: 20190711
  Serious: Yes (Hospitalization, Other)
  Sender: FDA-Public Use
  Company Number: US-GILEAD-2019-0391087

PATIENT
  Age: 56 Year
  Sex: Male

DRUGS (4)
  1. AMBRISENTAN [Suspect]
     Active Substance: AMBRISENTAN
     Indication: PULMONARY HYPERTENSION
     Dosage: 10 MG, QD
     Route: 065
     Dates: start: 20180518
  2. UPTRAVI [Suspect]
     Active Substance: SELEXIPAG
     Indication: PULMONARY HYPERTENSION
     Dosage: 1000 UG
     Route: 065
  3. REVATIO [Concomitant]
     Active Substance: SILDENAFIL CITRATE
  4. REMODULIN [Concomitant]
     Active Substance: TREPROSTINIL
     Route: 042

REACTIONS (22)
  - Weight increased [Unknown]
  - Diarrhoea [Not Recovered/Not Resolved]
  - Abdominal discomfort [Unknown]
  - Dyspnoea [Unknown]
  - Headache [Not Recovered/Not Resolved]
  - Pulmonary hypertension [Not Recovered/Not Resolved]
  - Abdominal distension [Unknown]
  - Arthralgia [Unknown]
  - Hyperkalaemia [Unknown]
  - Headache [Recovered/Resolved]
  - Oedema peripheral [Unknown]
  - Oedema [Recovering/Resolving]
  - Fluid retention [Unknown]
  - Ascites [Unknown]
  - Hyponatraemia [Unknown]
  - Nasopharyngitis [Not Recovered/Not Resolved]
  - Decreased appetite [Unknown]
  - Influenza [Unknown]
  - Pain in extremity [Unknown]
  - Right ventricular failure [Not Recovered/Not Resolved]
  - Pain [Not Recovered/Not Resolved]
  - Pain in extremity [Recovered/Resolved]

NARRATIVE: CASE EVENT DATE: 20190326
